FAERS Safety Report 9921024 (Version 2)
Quarter: 2014Q1

REPORT INFORMATION
  Report Type: Report from Study
  Country: US (occurrence: US)
  Receive Date: 20140225
  Receipt Date: 20140227
  Transmission Date: 20141002
  Serious: No
  Sender: FDA-Public Use
  Company Number: US-ROCHE-1333569

PATIENT
  Sex: Female
  Weight: 104.42 kg

DRUGS (11)
  1. LUCENTIS [Suspect]
     Indication: RETINAL OEDEMA
     Dosage: 05/NOV/2010, 4/FEB/2011, 05/AUG/2011, 13/JAN/2012
     Route: 050
     Dates: start: 20101008
  2. LUCENTIS [Suspect]
     Indication: VENOUS OCCLUSION
  3. AVASTIN [Suspect]
     Indication: PRODUCT USED FOR UNKNOWN INDICATION
     Route: 065
     Dates: start: 20110311
  4. EVENING PRIMROSE OIL [Concomitant]
  5. FISH OIL [Concomitant]
  6. GRAPE SEED [Concomitant]
  7. LISINOPRIL [Concomitant]
     Route: 048
  8. MILK THISTLE [Concomitant]
  9. OCUFLOX [Concomitant]
     Route: 065
  10. VITAMIN C [Concomitant]
  11. VITAMIN E [Concomitant]

REACTIONS (1)
  - Visual acuity reduced [Unknown]
